FAERS Safety Report 13842421 (Version 1)
Quarter: 2017Q3

REPORT INFORMATION
  Report Type: Spontaneous
  Country: NL (occurrence: NL)
  Receive Date: 20170808
  Receipt Date: 20170808
  Transmission Date: 20171127
  Serious: Yes (Hospitalization, Other)
  Sender: FDA-Public Use
  Company Number: NL-MYLANLABS-2017M1047058

PATIENT

DRUGS (1)
  1. ROSAL 0,03 MG/3 MG, FILMOMHULDE TABLETTEN [Suspect]
     Active Substance: DROSPIRENONE\ETHINYL ESTRADIOL
     Indication: MIGRAINE
     Dosage: 1X PER DAG 1 STUK
     Route: 048
     Dates: start: 20170602, end: 20170715

REACTIONS (2)
  - Pneumonia [Recovering/Resolving]
  - Pulmonary embolism [Recovering/Resolving]

NARRATIVE: CASE EVENT DATE: 20170710
